FAERS Safety Report 10278258 (Version 2)
Quarter: 2014Q3

REPORT INFORMATION
  Report Type: Spontaneous
  Country: US (occurrence: US)
  Receive Date: 20140704
  Receipt Date: 20140728
  Transmission Date: 20150326
  Serious: No
  Sender: FDA-Public Use
  Company Number: US-PFIZER INC-2014180104

PATIENT
  Age: 61 Year
  Sex: Male
  Weight: 83.9 kg

DRUGS (3)
  1. CHANTIX [Suspect]
     Active Substance: VARENICLINE TARTRATE
     Indication: SMOKING CESSATION THERAPY
     Dosage: STARTER PACK
     Route: 048
     Dates: start: 2014, end: 20140421
  2. SINGULAIR [Concomitant]
     Active Substance: MONTELUKAST SODIUM
     Dosage: 10 MG, DAILY
     Route: 048
  3. CHANTIX [Suspect]
     Active Substance: VARENICLINE TARTRATE
     Dosage: 1 MG, 2X/DAY
     Route: 048
     Dates: start: 20140422, end: 20140707

REACTIONS (13)
  - Dry skin [Unknown]
  - Hypoaesthesia [Unknown]
  - Vitreous floaters [Unknown]
  - Arthralgia [Unknown]
  - Abnormal dreams [Unknown]
  - Musculoskeletal pain [Unknown]
  - Photopsia [Unknown]
  - Photopsia [Unknown]
  - Weight increased [Unknown]
  - Insomnia [Unknown]
  - Pain [Unknown]
  - Rash [Unknown]
  - Decreased appetite [Unknown]

NARRATIVE: CASE EVENT DATE: 2014
